FAERS Safety Report 7210303-3 (Version None)
Quarter: 2010Q4

REPORT INFORMATION
  Report Type: 
  Country: None (occurrence: None)
  Receive Date: 20101223
  Receipt Date: 20101213
  Transmission Date: 20110411
  Serious: Yes (Hospitalization)
  Sender: FDA-Public Use
  Company Number: 781788

PATIENT
  Age: 61 Year
  Sex: Male

DRUGS (3)
  1. (AMIODARONE) [Suspect]
     Indication: ATRIAL FIBRILLATION
  2. AMIODARONE [Suspect]
     Indication: ATRIAL FIBRILLATION
     Dosage: 200 MG MILLIGRAM(S), ORAL
     Route: 048
  3. METOPROLOL TARTRATE [Concomitant]

REACTIONS (3)
  - HYPERTHYROIDISM [None]
  - LEFT VENTRICLE OUTFLOW TRACT OBSTRUCTION [None]
  - THYROID NEOPLASM [None]
